FAERS Safety Report 18860922 (Version 2)
Quarter: 2021Q1

REPORT INFORMATION
  Report Type: Report from Study
  Country: US (occurrence: US)
  Receive Date: 20210208
  Receipt Date: 20210316
  Transmission Date: 20210420
  Serious: Yes (Life-Threatening, Other)
  Sender: FDA-Public Use
  Company Number: NVSC2021US027955

PATIENT
  Sex: Male

DRUGS (1)
  1. COSENTYX [Suspect]
     Active Substance: SECUKINUMAB
     Indication: PRODUCT USED FOR UNKNOWN INDICATION
     Dosage: UNK
     Route: 065

REACTIONS (7)
  - Depression [Unknown]
  - Suicidal ideation [Unknown]
  - Hepatic cirrhosis [Unknown]
  - Feeling abnormal [Unknown]
  - Insomnia [Unknown]
  - Pruritus [Unknown]
  - Condition aggravated [Unknown]
